FAERS Safety Report 4917557-4 (Version None)
Quarter: 2006Q1

REPORT INFORMATION
  Report Type: 
  Country: None (occurrence: None)
  Receive Date: 20060221
  Receipt Date: 20060208
  Transmission Date: 20060701
  Serious: Yes (Death, Hospitalization)
  Sender: FDA-Public Use
  Company Number: US-MERCK-0602USA02562

PATIENT
  Age: 53 Year
  Sex: Female
  Weight: 136 kg

DRUGS (4)
  1. VIOXX [Suspect]
     Indication: BACK DISORDER
     Route: 048
     Dates: start: 20010101, end: 20021229
  2. VIOXX [Suspect]
     Route: 048
     Dates: start: 20010101, end: 20021229
  3. VIOXX [Suspect]
     Indication: ARTHRITIS
     Route: 048
     Dates: start: 20010101, end: 20021229
  4. VIOXX [Suspect]
     Route: 048
     Dates: start: 20010101, end: 20021229

REACTIONS (8)
  - ARTHRALGIA [None]
  - ATRIAL FIBRILLATION [None]
  - BACK DISORDER [None]
  - CARDIAC FAILURE CONGESTIVE [None]
  - GENERALISED OEDEMA [None]
  - PARKINSON'S DISEASE [None]
  - RENAL FAILURE CHRONIC [None]
  - STRESS INCONTINENCE [None]
